FAERS Safety Report 8444594-8 (Version None)
Quarter: 2012Q2

REPORT INFORMATION
  Report Type: 
  Country: None (occurrence: None)
  Receive Date: 20120618
  Receipt Date: 20120608
  Transmission Date: 20120825
  Serious: Yes (Hospitalization)
  Sender: FDA-Public Use
  Company Number: BR-ASTRAZENECA-2012SE38602

PATIENT
  Age: 71 Year
  Sex: Female
  Weight: 61 kg

DRUGS (3)
  1. ATACAND [Suspect]
     Indication: HYPERTENSION
     Route: 048
     Dates: start: 20120101
  2. ASPIRIN INFANTILE [Concomitant]
     Route: 048
     Dates: start: 20020101
  3. VYTORIN [Concomitant]
     Route: 048
     Dates: start: 20020101, end: 20120401

REACTIONS (4)
  - VARICOSE VEIN [None]
  - MYALGIA [None]
  - DRUG INEFFECTIVE [None]
  - BLOOD PRESSURE INCREASED [None]
